FAERS Safety Report 4591356-8 (Version None)
Quarter: 2005Q1

REPORT INFORMATION
  Report Type: 
  Country: None (occurrence: None)
  Receive Date: 20050222
  Receipt Date: 20041103
  Transmission Date: 20050727
  Serious: Yes (Hospitalization, Other)
  Sender: FDA-Public Use
  Company Number: 2004S1003284

PATIENT
  Age: 63 Year
  Sex: Male
  Weight: 108.8633 kg

DRUGS (9)
  1. CLONAZEPAM [Suspect]
     Indication: PANIC ATTACK
     Dosage: 1MG HS, ORAL
     Route: 048
     Dates: start: 20040930, end: 20041012
  2. LISINOPRIL [Concomitant]
  3. FENTANYL [Concomitant]
  4. FLUOXETINE [Concomitant]
  5. NPH INSULIN [Concomitant]
  6. REGULAR ILETIN [Concomitant]
  7. DOCUSATE/SENNA [Concomitant]
  8. ALPRAZOLAM [Concomitant]
  9. TEMAZEPAM [Concomitant]

REACTIONS (13)
  - ABDOMINAL DISTENSION [None]
  - ABDOMINAL PAIN [None]
  - ABDOMINAL PAIN UPPER [None]
  - CONSTIPATION [None]
  - DIARRHOEA [None]
  - DYSPEPSIA [None]
  - HEADACHE [None]
  - HEPATOCELLULAR DAMAGE [None]
  - HYPOAESTHESIA [None]
  - NIGHTMARE [None]
  - RASH [None]
  - URINARY RETENTION [None]
  - URINARY TRACT DISORDER [None]
